FAERS Safety Report 14138129 (Version 1)
Quarter: 2017Q4

REPORT INFORMATION
  Report Type: Spontaneous
  Country: US (occurrence: US)
  Receive Date: 20171027
  Receipt Date: 20171027
  Transmission Date: 20180321
  Serious: No
  Sender: FDA-Public Use
  Company Number: US-BAYER-2017-206338

PATIENT
  Age: 79 Year
  Sex: Male
  Weight: 64 kg

DRUGS (14)
  1. MIRALAX [Suspect]
     Active Substance: POLYETHYLENE GLYCOL 3350
     Indication: CONSTIPATION
  2. ALBUTEROL. [Concomitant]
     Active Substance: ALBUTEROL
  3. MIRALAX [Suspect]
     Active Substance: POLYETHYLENE GLYCOL 3350
     Indication: GASTROINTESTINAL DISORDER
     Dosage: 1/2 DOSE  4-5 TIMES IN A MONTH DOSE
     Route: 048
     Dates: start: 2017
  4. ALPRAZOLAM. [Concomitant]
     Active Substance: ALPRAZOLAM
  5. COENZYME Q10 [Concomitant]
     Active Substance: UBIDECARENONE
  6. SPIRIVA [Concomitant]
     Active Substance: TIOTROPIUM BROMIDE MONOHYDRATE
  7. VITAMIN B COM.W/VIT.C +FOLIC ACID [VIT C,B5,B12,B9,B3,B6,B2,B1 HCL [Concomitant]
  8. HYDROCHLOROTHIAZID [Concomitant]
     Active Substance: HYDROCHLOROTHIAZIDE
  9. ST. JOSEPH ASPIRIN [Concomitant]
     Indication: MYOCARDIAL INFARCTION
  10. LOVASTATIN. [Concomitant]
     Active Substance: LOVASTATIN
  11. LOSARTAN POTASSIUM. [Concomitant]
     Active Substance: LOSARTAN POTASSIUM
  12. VITAMIN D3 [Concomitant]
     Active Substance: CHOLECALCIFEROL
  13. VITAMIN B12 [Concomitant]
     Active Substance: CYANOCOBALAMIN
  14. DULCOLAX (BISACODYL) [Concomitant]
     Active Substance: BISACODYL
     Indication: CONSTIPATION

REACTIONS (2)
  - Product label confusion [None]
  - Underdose [Unknown]

NARRATIVE: CASE EVENT DATE: 2017
